FAERS Safety Report 5844846-1 (Version None)
Quarter: 2008Q3

REPORT INFORMATION
  Report Type: 
  Country: None (occurrence: None)
  Receive Date: 20080814
  Receipt Date: 20080806
  Transmission Date: 20090109
  Serious: Yes (Other)
  Sender: FDA-Public Use
  Company Number: US-BAYER-200830336NA

PATIENT
  Age: 34 Year
  Sex: Female
  Weight: 61 kg

DRUGS (2)
  1. OCELLA [Suspect]
     Indication: OVARIAN CYST
     Route: 048
     Dates: start: 20080726, end: 20080804
  2. SUDAFED 12 HOUR [Concomitant]
     Indication: DRUG USE FOR UNKNOWN INDICATION

REACTIONS (6)
  - PHARYNGEAL OEDEMA [None]
  - RASH PRURITIC [None]
  - SKIN TIGHTNESS [None]
  - SWOLLEN TONGUE [None]
  - THROAT TIGHTNESS [None]
  - URTICARIA [None]
